FAERS Safety Report 9284967 (Version 3)
Quarter: 2014Q2

REPORT INFORMATION
  Report Type: Report from Study
  Country: US (occurrence: US)
  Receive Date: 20130513
  Receipt Date: 20140619
  Transmission Date: 20141212
  Serious: Yes (Other)
  Sender: FDA-Public Use
  Company Number: PHEH2013US007410

PATIENT
  Sex: Female
  Weight: 108.84 kg

DRUGS (8)
  1. GILENYA [Suspect]
     Indication: MULTIPLE SCLEROSIS
     Dosage: 0.5 MG, QD
     Route: 048
     Dates: start: 20110715
  2. SERTRALINE [Suspect]
  3. CELEXA [Suspect]
     Indication: DEPRESSED MOOD
     Dosage: 1 DF, QD
     Route: 048
  4. KLOR-CON [Concomitant]
     Dosage: 10 MBQ, QD
     Route: 048
  5. VIT D3 [Concomitant]
     Dosage: 2000 U, QD
     Route: 048
  6. VIT B12 [Concomitant]
     Dosage: 1000 UG, QD
     Route: 048
  7. ZOLOFT [Concomitant]
     Dosage: 25 MG, UNK
     Route: 048
  8. CALCIUM +D                         /00944201/ [Concomitant]

REACTIONS (19)
  - Oedema peripheral [Unknown]
  - Peripheral venous disease [Unknown]
  - Feeling abnormal [Unknown]
  - Frustration [Unknown]
  - Muscular weakness [Unknown]
  - Abnormal dreams [Unknown]
  - Mental impairment [Unknown]
  - Bone disorder [Unknown]
  - Arthralgia [Unknown]
  - Visual impairment [Unknown]
  - Alopecia [Unknown]
  - Liver function test abnormal [Unknown]
  - Blood alkaline phosphatase increased [Unknown]
  - Hypertension [Unknown]
  - Weight increased [Unknown]
  - Hypokinesia [Unknown]
  - Nightmare [Unknown]
  - Fatigue [Unknown]
  - Depressed mood [Unknown]
